FAERS Safety Report 8119330-5 (Version None)
Quarter: 2012Q1

REPORT INFORMATION
  Report Type: 
  Country: None (occurrence: None)
  Receive Date: 20120207
  Receipt Date: 20120125
  Transmission Date: 20120608
  Serious: Yes (Hospitalization)
  Sender: FDA-Public Use
  Company Number: US-UCBSA-049667

PATIENT
  Sex: Male

DRUGS (2)
  1. CIPROFLOXACIN [Concomitant]
  2. CIMZIA [Suspect]
     Indication: CROHN'S DISEASE
     Route: 058

REACTIONS (4)
  - CROHN'S DISEASE [None]
  - CLOSTRIDIUM DIFFICILE COLITIS [None]
  - ENTEROCUTANEOUS FISTULA [None]
  - ABDOMINAL ABSCESS [None]
